FAERS Safety Report 21579357 (Version 2)
Quarter: 2022Q4

REPORT INFORMATION
  Report Type: Spontaneous
  Country: NL (occurrence: NL)
  Receive Date: 20221110
  Receipt Date: 20221122
  Transmission Date: 20230113
  Serious: Yes (Other)
  Sender: FDA-Public Use
  Company Number: None

PATIENT
  Sex: Female

DRUGS (11)
  1. APIXABAN [Suspect]
     Active Substance: APIXABAN
     Indication: Cerebrovascular accident prophylaxis
     Route: 065
     Dates: start: 20220821, end: 20220913
  2. FLECAINIDE [Concomitant]
     Active Substance: FLECAINIDE
     Indication: Product used for unknown indication
     Dosage: 150 MG (MILLIGRAM)
  3. CARBOMEER 980 [Concomitant]
     Indication: Product used for unknown indication
     Dosage: 2 MG/G (MILLIGRAM PER GRAM)
  4. NASONEX [Concomitant]
     Active Substance: MOMETASONE FUROATE
     Indication: Product used for unknown indication
     Dosage: NEUSSPRAY, 50 G/DOSIS (MICROGRAM PER DOSIS)
  5. LORAZEPAM [Concomitant]
     Active Substance: LORAZEPAM
     Indication: Product used for unknown indication
     Dosage: TABLET, 2,5 MG (MILLIGRAM)
  6. VERAPAMIL [Concomitant]
     Active Substance: VERAPAMIL HYDROCHLORIDE
     Indication: Product used for unknown indication
     Dosage: 240 MG (MILLIGRAM)
  7. DEXAMETHASONE [Concomitant]
     Active Substance: DEXAMETHASONE
     Indication: Product used for unknown indication
     Dosage: 2.5 MG/G (MILLIGRAM PER GRAM)
  8. DURATEARS Z [Concomitant]
     Indication: Product used for unknown indication
  9. HYDROCORTISONE [Concomitant]
     Active Substance: HYDROCORTISONE
     Indication: Product used for unknown indication
     Dosage: 1 MG/ML (MILLIGRAM PER MILLILITER)
  10. OMEPRAZOLE [Concomitant]
     Active Substance: OMEPRAZOLE
     Indication: Product used for unknown indication
     Dosage: CAPSULE, 20 MG (MILLIGRAM)
  11. LEVOTHYROXINE [Concomitant]
     Active Substance: LEVOTHYROXINE
     Indication: Product used for unknown indication
     Dosage: TABLET, 25 G (MICROGRAM)

REACTIONS (3)
  - Product substitution issue [Unknown]
  - Condition aggravated [Recovering/Resolving]
  - Macular degeneration [Recovering/Resolving]
